FAERS Safety Report 11101293 (Version 3)
Quarter: 2015Q3

REPORT INFORMATION
  Report Type: Spontaneous
  Country: US (occurrence: US)
  Receive Date: 20150508
  Receipt Date: 20150921
  Transmission Date: 20151125
  Serious: No
  Sender: FDA-Public Use
  Company Number: US-PFIZER INC-2015148033

PATIENT
  Age: 47 Year
  Sex: Female

DRUGS (11)
  1. LOPERAMIDE HCL [Concomitant]
     Active Substance: LOPERAMIDE HYDROCHLORIDE
     Dosage: UNK, 4X/DAY
  2. ZOLOFT [Concomitant]
     Active Substance: SERTRALINE HYDROCHLORIDE
     Dosage: 25 MG, 1X/DAY
  3. ACTONEL [Concomitant]
     Active Substance: RISEDRONATE SODIUM
     Dosage: 150 MG, ONCE DAILY AS NEEDED
  4. NOR-QD [Concomitant]
     Active Substance: NORETHINDRONE
     Dosage: 0.35 MG, ONCE A DAY AS NEEDED
  5. CLARITIN [Concomitant]
     Active Substance: LORATADINE
     Dosage: 10 MG, ONCE DAILY AS NEEDED
  6. DUAVEE [Suspect]
     Active Substance: BAZEDOXIFENE ACETATE\ESTROGENS, CONJUGATED
     Indication: MENOPAUSAL SYMPTOMS
  7. METAMUCIL [Concomitant]
     Active Substance: PLANTAGO SEED
     Dosage: UNK
  8. MELATONIN [Concomitant]
     Active Substance: MELATONIN
     Dosage: 3 MG, AS NEEDED
  9. CALCIUM [Concomitant]
     Active Substance: CALCIUM
     Dosage: 1500 MG, 2X/DAY
  10. SINGULAIR [Concomitant]
     Active Substance: MONTELUKAST SODIUM
     Dosage: 10 MG, 1X/DAY (IN THE EVENING)
  11. DUAVEE [Suspect]
     Active Substance: BAZEDOXIFENE ACETATE\ESTROGENS, CONJUGATED
     Indication: MENOPAUSAL DISORDER
     Dosage: 1 DF (0.45-20 MG), 1X/DAY
     Route: 048
     Dates: start: 20150313, end: 20150323

REACTIONS (1)
  - Neck pain [Recovered/Resolved]
